FAERS Safety Report 5669666-2 (Version None)
Quarter: 2008Q1

REPORT INFORMATION
  Report Type: 
  Country: None (occurrence: None)
  Receive Date: 20080317
  Receipt Date: 20080305
  Transmission Date: 20080703
  Serious: Yes (Death, Other)
  Sender: FDA-Public Use
  Company Number: JP-ROCHE-550079

PATIENT
  Age: 67 Year
  Sex: Female

DRUGS (19)
  1. TAMIFLU [Suspect]
     Route: 048
     Dates: start: 20080117, end: 20080117
  2. TAMIFLU [Suspect]
     Route: 048
     Dates: start: 20080118, end: 20080118
  3. TAMIFLU [Suspect]
     Route: 048
     Dates: start: 20080119, end: 20080119
  4. ZONISAMIDE [Concomitant]
     Route: 048
  5. SENNOSIDE [Concomitant]
     Route: 048
  6. RESPLEN [Concomitant]
     Route: 048
  7. PARLODEL [Concomitant]
     Route: 048
  8. CARBIDOPA AND LEVODOPA [Concomitant]
     Route: 048
  9. POLLAKISU [Concomitant]
     Route: 048
  10. FP TABLET 2.5 [Concomitant]
     Dosage: DRUG REPORTED AS FP.
     Route: 048
  11. CINAL [Concomitant]
     Route: 048
  12. CABERGOLINE [Concomitant]
     Route: 048
  13. NAPAGELN [Concomitant]
     Route: 061
  14. KETOPROFEN [Concomitant]
     Dosage: FORM REPORTED AS TAPE. DRUG REPORTED AS MOHRUS TAPE.
     Route: 061
  15. THEO-DUR [Concomitant]
     Route: 048
     Dates: start: 20080116
  16. KIPRES [Concomitant]
     Route: 048
     Dates: start: 20080116
  17. 1 CONCOMITANT DRUG [Concomitant]
     Dosage: DRUG: ADOAIR (SALMETEROL XINAFOATE/FLUTICASONE PROPIONATE)
     Route: 055
     Dates: start: 20080116
  18. ANYRUME [Concomitant]
     Dosage: TAKEN AS NEEDED.
     Route: 048
     Dates: start: 20080117, end: 20080117
  19. LIGHTGEN T [Concomitant]
     Dosage: TAKEN AS NEEDED.
     Route: 048
     Dates: start: 20080117, end: 20080117

REACTIONS (4)
  - ABNORMAL BEHAVIOUR [None]
  - CARDIO-RESPIRATORY ARREST [None]
  - CEREBROVASCULAR DISORDER [None]
  - DYSKINESIA [None]
